FAERS Safety Report 17091709 (Version 2)
Quarter: 2019Q4

REPORT INFORMATION
  Report Type: Report from Study
  Country: ZA (occurrence: UG)
  Receive Date: 20191129
  Receipt Date: 20191204
  Transmission Date: 20200122
  Serious: Yes (Other)
  Sender: FDA-Public Use
  Company Number: ZA-VIIV HEALTHCARE LIMITED-ZA2019GSK210852

PATIENT
  Sex: Female

DRUGS (20)
  1. AMOXYCILLIN [Concomitant]
     Active Substance: AMOXICILLIN
     Dosage: 1500 MG, QD
     Dates: start: 20190303, end: 20190310
  2. FEFOL [Concomitant]
     Active Substance: FERROUS SULFATE\FOLIC ACID
     Dosage: UNK
     Dates: start: 20190704, end: 20190714
  3. LAMIVUDINE + TENOFOVIR DISOPROXIL FUMARATE [Concomitant]
     Active Substance: LAMIVUDINE\TENOFOVIR DISOPROXIL FUMARATE
     Dosage: 600 MG, QD
     Dates: start: 20181101
  4. CEFIXIME. [Concomitant]
     Active Substance: CEFIXIME
     Dosage: 400 MG, QD
     Dates: start: 20180716, end: 201807
  5. ALBENDAZOLE. [Concomitant]
     Active Substance: ALBENDAZOLE
     Dosage: 400 MG, QD
     Dates: start: 20180509, end: 20180509
  6. DOLUTEGRAVIR [Suspect]
     Active Substance: DOLUTEGRAVIR
     Indication: HIV INFECTION
     Dosage: 50 MG, QD
     Dates: start: 20180509, end: 20181031
  7. METRONIDAZOLE. [Concomitant]
     Active Substance: METRONIDAZOLE
     Dosage: 1200 MG, QD
     Dates: start: 20180716, end: 201807
  8. OMEPRAZOLE. [Concomitant]
     Active Substance: OMEPRAZOLE
     Dosage: 20 MG, QD
     Dates: start: 20181218, end: 201812
  9. DOLUTEGRAVIR [Suspect]
     Active Substance: DOLUTEGRAVIR
     Dosage: 50 MG, QD
     Dates: start: 20181101
  10. LAMIVUDINE + TENOFOVIR DISOPROXIL FUMARATE [Concomitant]
     Active Substance: LAMIVUDINE\TENOFOVIR DISOPROXIL FUMARATE
     Indication: HIV INFECTION
     Dosage: 600 MG, QD
     Dates: start: 20180509, end: 20181031
  11. COTRIMOXAZOLE [Concomitant]
     Active Substance: SULFAMETHOXAZOLE\TRIMETHOPRIM
     Dosage: 240 MG, QD
     Dates: start: 20180509
  12. CLOTRIMAZOLE. [Concomitant]
     Active Substance: CLOTRIMAZOLE
     Dosage: UNK
     Dates: start: 20190314, end: 201903
  13. PIPERAQUINE PHOSPHATE. [Concomitant]
     Active Substance: PIPERAQUINE PHOSPHATE
     Dosage: 900 MG, QD
     Dates: start: 20181204, end: 20181204
  14. HYDROCORTISONE. [Concomitant]
     Active Substance: HYDROCORTISONE
     Dosage: UNK
     Dates: start: 20180509, end: 20180514
  15. PREDNISOLONE. [Concomitant]
     Active Substance: PREDNISOLONE
     Dosage: UNK
     Dates: start: 20180629, end: 201806
  16. FEFOL [Concomitant]
     Active Substance: FERROUS SULFATE\FOLIC ACID
     Dosage: 1 DF, QD (200/0.25)
     Dates: start: 20180509, end: 201807
  17. MICROGYNON [Concomitant]
     Active Substance: ETHINYL ESTRADIOL\LEVONORGESTREL ACETATE
     Dosage: UNK
     Dates: start: 201812, end: 201909
  18. TRANEXAMIC ACID. [Concomitant]
     Active Substance: TRANEXAMIC ACID
     Dosage: 3000 MG, QD
     Dates: start: 20180606, end: 201806
  19. CETIRIZINE [Concomitant]
     Active Substance: CETIRIZINE HYDROCHLORIDE
     Dosage: 10 MG, QD
     Dates: start: 20191029
  20. ARTEROLANE MALEATE [Concomitant]
     Dosage: 900 MG, QD
     Dates: start: 20181204, end: 20181204

REACTIONS (1)
  - Abortion spontaneous [Recovered/Resolved]

NARRATIVE: CASE EVENT DATE: 2019
